FAERS Safety Report 6147238-3 (Version None)
Quarter: 2009Q2

REPORT INFORMATION
  Report Type: 
  Country: None (occurrence: None)
  Receive Date: 20090408
  Receipt Date: 20090327
  Transmission Date: 20091009
  Serious: Yes (Hospitalization)
  Sender: FDA-Public Use
  Company Number: IN-RANBAXY-2009RR-23137

PATIENT
  Age: 80 Year
  Sex: Male

DRUGS (8)
  1. RANITIDINE [Suspect]
     Indication: PAIN
     Dosage: 150 MG, BID
  2. MORPHINE SULFATE [Suspect]
     Indication: PAIN
     Dosage: 5 MG, Q4H
  3. MORPHINE SULFATE [Suspect]
     Dosage: 15 MG, Q4H
  4. MORPHINE SULFATE [Suspect]
     Dosage: 20 MG, Q4H
     Route: 048
  5. MORPHINE SULFATE [Suspect]
     Dosage: 10 MG, UNK
     Route: 048
  6. MORPHINE SULFATE [Suspect]
     Dosage: 30 MG, Q4H
  7. AMITRIPTYLINE [Suspect]
     Dosage: 25 MG, QD
  8. AMITRIPTYLINE [Suspect]
     Dosage: 50 MG, QD

REACTIONS (3)
  - DRUG INTERACTION [None]
  - LOSS OF CONSCIOUSNESS [None]
  - OVERDOSE [None]
